FAERS Safety Report 9554513 (Version 2)
Quarter: 2013Q3

REPORT INFORMATION
  Report Type: Spontaneous
  Country: US (occurrence: US)
  Receive Date: 20130925
  Receipt Date: 20130927
  Transmission Date: 20140515
  Serious: No
  Sender: FDA-Public Use
  Company Number: US-009507513-1309USA005277

PATIENT
  Age: 17 Year
  Sex: Female
  Weight: 75.1 kg

DRUGS (1)
  1. IMPLANON [Suspect]
     Indication: CONTRACEPTION
     Dosage: 68 MG, 3 YEAR IMPLANT
     Route: 059
     Dates: start: 20110609

REACTIONS (3)
  - Device kink [Not Recovered/Not Resolved]
  - Menstruation irregular [Not Recovered/Not Resolved]
  - Pain in extremity [Not Recovered/Not Resolved]
